FAERS Safety Report 24313117 (Version 1)
Quarter: 2024Q3

REPORT INFORMATION
  Report Type: Spontaneous
  Country: NO (occurrence: NO)
  Receive Date: 20240912
  Receipt Date: 20240912
  Transmission Date: 20241016
  Serious: Yes (Other)
  Sender: TEVA
  Company Number: None

PATIENT
  Age: 56 Year
  Sex: Female

DRUGS (6)
  1. TRAMADOL [Suspect]
     Active Substance: TRAMADOL\TRAMADOL HYDROCHLORIDE
     Indication: Analgesic therapy
     Dosage: 1 - 3 TIMES DAILY IF HAVING PAIN ; TRAMADOL ACTAVIS
     Route: 048
     Dates: start: 20240708, end: 20240728
  2. SOLIFENACIN [Concomitant]
     Active Substance: SOLIFENACIN
     Indication: Micturition urgency
     Dosage: 1 TIME EVERY EVENING
     Route: 065
     Dates: start: 20240708
  3. INTRAROSA [Concomitant]
     Active Substance: PRASTERONE
     Indication: Bladder disorder
     Dosage: 1 SUPPOSITORY EVERY EVENING; INTRAROSA VAGITORIE
     Route: 065
     Dates: start: 20240708
  4. ATORVASTATIN XIROMED [Concomitant]
     Indication: Hypercholesterolaemia
     Dosage: 1 TABLET EVERY MORNING
     Route: 065
  5. MIRABEGRON [Concomitant]
     Active Substance: MIRABEGRON
     Indication: Incontinence
     Dosage: 1 TIME EVERY MORNING; BETMIGA DEPOT
     Route: 065
  6. AMITRIPTYLINE HYDROCHLORIDE [Concomitant]
     Active Substance: AMITRIPTYLINE HYDROCHLORIDE
     Indication: Sleep disorder
     Dosage: 20 MG EVERY NIGHT
     Route: 065

REACTIONS (1)
  - Dermatitis bullous [Recovered/Resolved]

NARRATIVE: CASE EVENT DATE: 20240701
